FAERS Safety Report 6696142-0 (Version None)
Quarter: 2010Q2

REPORT INFORMATION
  Report Type: 
  Country: None (occurrence: None)
  Receive Date: 20100426
  Receipt Date: 20100422
  Transmission Date: 20101027
  Serious: Yes (Life-Threatening, Hospitalization)
  Sender: FDA-Public Use
  Company Number: JP-BRISTOL-MYERS SQUIBB COMPANY-15029358

PATIENT
  Age: 78 Year
  Sex: Male
  Weight: 67 kg

DRUGS (12)
  1. TAXOL [Suspect]
     Indication: LUNG ADENOCARCINOMA
     Dosage: ONCE A WEEK FOR 2 DAYS
     Route: 041
     Dates: start: 20100302, end: 20100309
  2. PARAPLATIN [Suspect]
     Indication: LUNG ADENOCARCINOMA
     Dosage: 1 D.F:AUC=5
     Route: 041
     Dates: start: 20100302, end: 20100302
  3. GRANISETRON HCL [Concomitant]
     Dosage: 2MAR10-9MAR2010:ONCE A WEEK TWO TIMES
     Route: 041
     Dates: start: 20100302, end: 20100309
  4. DEXART [Concomitant]
     Dosage: 2MAR10-9MAR2010:ONCE A WEEK TWO TIMES
     Route: 041
     Dates: start: 20100302, end: 20100309
  5. GASTER [Concomitant]
     Dosage: D.I.V 1A ONCE A WEEK FOR 2 DAYS
     Route: 041
     Dates: start: 20100302, end: 20100309
  6. FOIPAN [Concomitant]
     Route: 048
  7. MUCOSOLVAN [Concomitant]
     Route: 048
  8. AMOBAN [Concomitant]
     Route: 048
  9. PROTECADIN [Concomitant]
     Route: 048
  10. URALYT [Concomitant]
     Route: 048
  11. ALOSITOL [Concomitant]
     Route: 048
  12. VENA [Concomitant]
     Dosage: 1DF-10MGX5 TAB/WEEK
     Route: 048
     Dates: start: 20100302, end: 20100309

REACTIONS (2)
  - ATRIOVENTRICULAR BLOCK COMPLETE [None]
  - LOSS OF CONSCIOUSNESS [None]
